FAERS Safety Report 17164891 (Version 1)
Quarter: 2019Q4

REPORT INFORMATION
  Report Type: Spontaneous
  Country: US (occurrence: US)
  Receive Date: 20191217
  Receipt Date: 20191217
  Transmission Date: 20200122
  Serious: No
  Sender: FDA-Public Use
  Company Number: US-ROCHE-2366421

PATIENT
  Age: 78 Year
  Sex: Female
  Weight: 77.18 kg

DRUGS (2)
  1. BETADINE [Concomitant]
     Active Substance: POVIDONE-IODINE
  2. LUCENTIS [Suspect]
     Active Substance: RANIBIZUMAB
     Indication: NEOVASCULAR AGE-RELATED MACULAR DEGENERATION
     Dosage: ONCE A MONTH RIGHT EYE
     Route: 065
     Dates: start: 201907

REACTIONS (7)
  - Vision blurred [Not Recovered/Not Resolved]
  - Eye irritation [Recovered/Resolved]
  - Vitreous floaters [Recovered/Resolved]
  - Pruritus [Not Recovered/Not Resolved]
  - Vision blurred [Not Recovered/Not Resolved]
  - Drug hypersensitivity [Unknown]
  - Lacrimation increased [Not Recovered/Not Resolved]

NARRATIVE: CASE EVENT DATE: 20190815
